FAERS Safety Report 13115259 (Version 3)
Quarter: 2019Q1

REPORT INFORMATION
  Report Type: Report from Study
  Country: US (occurrence: US)
  Receive Date: 20170113
  Receipt Date: 20190121
  Transmission Date: 20190417
  Serious: Yes (Death, Hospitalization)
  Sender: FDA-Public Use
  Company Number: US-ACTELION-A-US2017-148163

PATIENT
  Age: 62 Year
  Sex: Male
  Weight: 76.19 kg

DRUGS (4)
  1. UPTRAVI [Suspect]
     Active Substance: SELEXIPAG
     Dosage: 1600 MCG, BID
     Route: 048
     Dates: start: 20161018
  2. UPTRAVI [Suspect]
     Active Substance: SELEXIPAG
     Indication: PULMONARY ARTERIAL HYPERTENSION
     Dosage: 1200 MCG, BID
     Route: 048
     Dates: start: 20180308, end: 20181210
  3. ADEMPAS [Concomitant]
     Active Substance: RIOCIGUAT
  4. XARELTO [Concomitant]
     Active Substance: RIVAROXABAN

REACTIONS (8)
  - Diarrhoea [Unknown]
  - Silent myocardial infarction [Recovering/Resolving]
  - Constipation [Unknown]
  - Oedema [Unknown]
  - Myocardial necrosis marker increased [Recovering/Resolving]
  - Fall [Fatal]
  - Asthenia [Recovering/Resolving]
  - Nausea [Unknown]

NARRATIVE: CASE EVENT DATE: 20170104
